FAERS Safety Report 22183625 (Version 3)
Quarter: 2023Q2

REPORT INFORMATION
  Report Type: Spontaneous
  Country: US (occurrence: US)
  Receive Date: 20230406
  Receipt Date: 20230622
  Transmission Date: 20230722
  Serious: Yes (Hospitalization)
  Sender: FDA-Public Use
  Company Number: US-KARYOPHARM-2023KPT000979

PATIENT

DRUGS (3)
  1. XPOVIO [Suspect]
     Active Substance: SELINEXOR
     Indication: Plasma cell myeloma
     Dosage: 80 MG, 2X/WEEK
     Route: 048
     Dates: start: 20230316, end: 20230609
  2. DEXAMETHASONE [Concomitant]
     Active Substance: DEXAMETHASONE
  3. POMALYST [Concomitant]
     Active Substance: POMALIDOMIDE

REACTIONS (10)
  - Pneumonia [Recovered/Resolved]
  - Insomnia [Unknown]
  - Full blood count decreased [Unknown]
  - Somnolence [Unknown]
  - Nail discolouration [Unknown]
  - Fatigue [Not Recovered/Not Resolved]
  - Asthenia [Not Recovered/Not Resolved]
  - Dyspnoea [Unknown]
  - Diarrhoea [Unknown]
  - Incorrect dose administered [Unknown]

NARRATIVE: CASE EVENT DATE: 20230101
